FAERS Safety Report 14462917 (Version 1)
Quarter: 2018Q1

REPORT INFORMATION
  Report Type: Spontaneous
  Country: GB (occurrence: GB)
  Receive Date: 20180130
  Receipt Date: 20180130
  Transmission Date: 20180509
  Serious: Yes (Death, Hospitalization, Disabling, Other)
  Sender: FDA-Public Use
  Company Number: GB-TEVA-600266ACC

PATIENT
  Age: 62 Year
  Sex: Female

DRUGS (11)
  1. FLUDARABINE [Suspect]
     Active Substance: FLUDARABINE PHOSPHATE
     Indication: B-CELL LYMPHOMA
     Dosage: 40 MILLIGRAM DAILY; FOR 5 DAYS; DAILY DOSE: 40 MG
     Route: 048
     Dates: start: 20031119, end: 20031123
  2. CYCLOPHOSPHAMIDE. [Concomitant]
     Active Substance: CYCLOPHOSPHAMIDE
     Route: 065
     Dates: start: 199910
  3. DOXORUBICIN [Concomitant]
     Active Substance: DOXORUBICIN
     Route: 065
     Dates: start: 200101
  4. PREDNISONE. [Concomitant]
     Active Substance: PREDNISONE
     Route: 065
     Dates: start: 199910
  5. ALLOPURINOL. [Suspect]
     Active Substance: ALLOPURINOL
     Indication: B-CELL LYMPHOMA
     Dosage: 300 MILLIGRAM DAILY;
     Route: 048
     Dates: start: 20031119
  6. VINCRISTIN [Concomitant]
     Active Substance: VINCRISTINE
     Route: 065
     Dates: start: 199910
  7. DOXORUBICIN [Concomitant]
     Active Substance: DOXORUBICIN
     Route: 065
     Dates: start: 199910
  8. VINCRISTIN [Concomitant]
     Active Substance: VINCRISTINE
     Route: 065
     Dates: start: 200101
  9. MABTHERA [Suspect]
     Active Substance: RITUXIMAB
     Indication: B-CELL LYMPHOMA
     Dosage: 1 CYCLE, ONCE WEEKLY FOR 4 DOSES
     Route: 042
     Dates: start: 20020606, end: 20020627
  10. CYCLOPHOSPHAMIDE. [Concomitant]
     Active Substance: CYCLOPHOSPHAMIDE
     Route: 065
     Dates: start: 200101
  11. PREDNISONE. [Concomitant]
     Active Substance: PREDNISONE
     Route: 065
     Dates: start: 200101

REACTIONS (4)
  - Pneumothorax [Unknown]
  - Subcutaneous emphysema [Unknown]
  - Lower respiratory tract infection [Not Recovered/Not Resolved]
  - Non-Hodgkin^s lymphoma [Fatal]

NARRATIVE: CASE EVENT DATE: 20031208
